FAERS Safety Report 16894346 (Version 1)
Quarter: 2019Q4

REPORT INFORMATION
  Report Type: Spontaneous
  Country: US (occurrence: US)
  Receive Date: 20191008
  Receipt Date: 20191008
  Transmission Date: 20200122
  Serious: Yes (Hospitalization)
  Sender: FDA-Public Use
  Company Number: US-INDIVIOR LIMITED-INDV-113667-2018

PATIENT

DRUGS (3)
  1. SUBOXONE [Suspect]
     Active Substance: BUPRENORPHINE HYDROCHLORIDE\NALOXONE HYDROCHLORIDE
     Dosage: CUTTING 2MG EVERY 4 DAYS
     Route: 065
     Dates: start: 2018, end: 201808
  2. SUBOXONE [Suspect]
     Active Substance: BUPRENORPHINE HYDROCHLORIDE\NALOXONE HYDROCHLORIDE
     Indication: PRODUCT USED FOR UNKNOWN INDICATION
     Dosage: 16MG PER DAY
     Route: 065
     Dates: start: 2017, end: 2018
  3. SUBOXONE [Suspect]
     Active Substance: BUPRENORPHINE HYDROCHLORIDE\NALOXONE HYDROCHLORIDE
     Dosage: CUT INTO 4 STRIPS, CUT ONE OF THE STRIPS IN HALF
     Route: 065
     Dates: start: 201808

REACTIONS (9)
  - Intentional underdose [Not Recovered/Not Resolved]
  - Pain [Unknown]
  - Lacrimation increased [Not Recovered/Not Resolved]
  - Anxiety [Unknown]
  - Drug detoxification [Recovered/Resolved]
  - Wrong technique in product usage process [Not Recovered/Not Resolved]
  - Therapeutic response unexpected [Unknown]
  - Pain in extremity [Not Recovered/Not Resolved]
  - Libido increased [Unknown]

NARRATIVE: CASE EVENT DATE: 2018
